FAERS Safety Report 5933364-8 (Version None)
Quarter: 2008Q4

REPORT INFORMATION
  Report Type: 
  Country: None (occurrence: None)
  Receive Date: 20081023
  Receipt Date: 20081009
  Transmission Date: 20090506
  Serious: Yes (Other)
  Sender: FDA-Public Use
  Company Number: 2008S1018491

PATIENT
  Age: 51 Year
  Sex: Male

DRUGS (11)
  1. BYSTOLIC [Suspect]
     Indication: HYPERTENSION
     Dosage: 15 MG; DAILY; ORAL
     Route: 048
     Dates: start: 20080901
  2. OXYCONTIN [Concomitant]
  3. OXYCODONE HCL [Concomitant]
  4. METHADONE HCL [Concomitant]
  5. AMBIEN [Concomitant]
  6. AMITRIPTYLINE HCL [Concomitant]
  7. NITROGLYCERIN [Concomitant]
  8. VITAMINS [Concomitant]
  9. FOLIC ACID [Concomitant]
  10. LANTUS [Concomitant]
  11. HUMALOG [Concomitant]

REACTIONS (9)
  - ATRIOVENTRICULAR BLOCK [None]
  - CHEST DISCOMFORT [None]
  - CONVULSION [None]
  - FALL [None]
  - HEADACHE [None]
  - INFLUENZA LIKE ILLNESS [None]
  - INSOMNIA [None]
  - MALAISE [None]
  - OROPHARYNGEAL PAIN [None]
